FAERS Safety Report 11243353 (Version 2)
Quarter: 2015Q3

REPORT INFORMATION
  Report Type: Report from Study
  Country: BR (occurrence: BR)
  Receive Date: 20150707
  Receipt Date: 20150810
  Transmission Date: 20151125
  Serious: Yes (Other)
  Sender: FDA-Public Use
  Company Number: PHHY2015BR077911

PATIENT
  Age: 58 Year
  Sex: Female
  Weight: 71 kg

DRUGS (9)
  1. TRILEPTAL [Suspect]
     Active Substance: OXCARBAZEPINE
     Indication: BIPOLAR DISORDER
     Dosage: 2 DF, QD
     Route: 048
  2. GALVUS MET [Concomitant]
     Active Substance: METFORMIN HYDROCHLORIDE\VILDAGLIPTIN
     Indication: DIABETES MELLITUS
     Dosage: 1 DF, QD
     Route: 048
     Dates: start: 20150701
  3. GEODON [Concomitant]
     Active Substance: ZIPRASIDONE HYDROCHLORIDE\ZIPRASIDONE MESYLATE
     Indication: BIPOLAR DISORDER
     Dosage: 80 MG, TID. START DATE: 6 YEARS AGO
     Route: 048
  4. GEODON [Concomitant]
     Active Substance: ZIPRASIDONE HYDROCHLORIDE\ZIPRASIDONE MESYLATE
     Dosage: 40 MG, TID. START DATE: 6 YEARS AGO
     Route: 048
  5. OLANZAPINE. [Concomitant]
     Active Substance: OLANZAPINE
     Indication: ANXIETY
     Dosage: 1 DF, QD.. START DATE: 1 YEAR AGO
     Route: 048
  6. DEPAKOTE [Concomitant]
     Active Substance: DIVALPROEX SODIUM
     Indication: BIPOLAR DISORDER
     Dosage: 1 DF, BID. START DATE: 6 YEARS AGO
     Route: 048
  7. AKINETON [Concomitant]
     Active Substance: BIPERIDEN HYDROCHLORIDE
     Indication: BIPOLAR DISORDER
     Dosage: 1 DF, TID. START DATE: 6 YEARS AGO
     Route: 048
  8. PROPRANOLOL [Concomitant]
     Active Substance: PROPRANOLOL\PROPRANOLOL HYDROCHLORIDE
     Indication: TREMOR
     Dosage: 1 DF, BID. START DATE: 2 YEARS AGO
     Route: 048
  9. RIVOTRIL [Concomitant]
     Active Substance: CLONAZEPAM
     Indication: ANXIETY
     Dosage: 1 DF, QD. START DATE: 6 YEARS AGO
     Route: 048

REACTIONS (10)
  - Blood cholesterol increased [Unknown]
  - Off label use [Unknown]
  - Gastritis [Unknown]
  - Otosclerosis [Unknown]
  - Lacrimation decreased [Unknown]
  - Diabetes mellitus [Unknown]
  - Chronic gastritis [Unknown]
  - Blood glucose decreased [Unknown]
  - Vitamin D decreased [Unknown]
  - Eye infection bacterial [Unknown]

NARRATIVE: CASE EVENT DATE: 20140624
